FAERS Safety Report 23178842 (Version 2)
Quarter: 2023Q4

REPORT INFORMATION
  Report Type: Report from Study
  Country: US (occurrence: US)
  Receive Date: 20231113
  Receipt Date: 20231211
  Transmission Date: 20240109
  Serious: Yes (Other)
  Sender: FDA-Public Use
  Company Number: US-ASTELLAS-2023US033929

PATIENT
  Sex: Male

DRUGS (2)
  1. ENZALUTAMIDE [Suspect]
     Active Substance: ENZALUTAMIDE
     Indication: Prostate cancer
     Dosage: UNK UNK, UNKNOWN FREQ.
     Route: 065
  2. ORGOVYX [Suspect]
     Active Substance: RELUGOLIX
     Indication: Prostate cancer
     Route: 048
     Dates: start: 20231012

REACTIONS (7)
  - Loss of consciousness [Unknown]
  - Insomnia [Unknown]
  - Skin sensitisation [Unknown]
  - Restlessness [Unknown]
  - Fatigue [Unknown]
  - Blood testosterone decreased [Unknown]
  - Prostatic specific antigen abnormal [Unknown]
